FAERS Safety Report 4409675-4 (Version None)
Quarter: 2004Q3

REPORT INFORMATION
  Report Type: 
  Country: None (occurrence: None)
  Receive Date: 20040727
  Receipt Date: 20040727
  Transmission Date: 20050211
  Serious: Yes (Disabling)
  Sender: FDA-Public Use
  Company Number: None

PATIENT
  Age: 50 Year
  Sex: Male
  Weight: 129.2752 kg

DRUGS (3)
  1. METFORMIN HCL [Suspect]
     Indication: DIABETES MELLITUS NON-INSULIN-DEPENDENT
     Dosage: 500 MG 2X / DAY
     Dates: start: 20031212, end: 20040408
  2. DIOVAN HCT [Concomitant]
  3. ALTOCOR [Concomitant]

REACTIONS (2)
  - CATARACT [None]
  - DISEASE PROGRESSION [None]
